FAERS Safety Report 8287426-3 (Version None)
Quarter: 2012Q2

REPORT INFORMATION
  Report Type: 
  Country: None (occurrence: None)
  Receive Date: 20120410
  Receipt Date: 20120410
  Transmission Date: 20120825
  Serious: Yes (Other)
  Sender: FDA-Public Use
  Company Number: None

PATIENT
  Sex: Female
  Weight: 113.3993 kg

DRUGS (1)
  1. HALOPERIDOL [Suspect]
     Indication: SCHIZOPHRENIA
     Dosage: 5MG DAILY
     Dates: start: 20020101, end: 20120101

REACTIONS (6)
  - HAIR COLOUR CHANGES [None]
  - ALOPECIA [None]
  - HAIR GROWTH ABNORMAL [None]
  - WEIGHT INCREASED [None]
  - MELANOCYTIC NAEVUS [None]
  - EYELASH DISCOLOURATION [None]
